FAERS Safety Report 7961801-6 (Version None)
Quarter: 2011Q4

REPORT INFORMATION
  Report Type: 
  Country: None (occurrence: None)
  Receive Date: 20111207
  Receipt Date: 20111129
  Transmission Date: 20120403
  Serious: No
  Sender: FDA-Public Use
  Company Number: US-JNJFOC-20111202680

PATIENT
  Sex: Male

DRUGS (2)
  1. REMICADE [Suspect]
     Indication: CROHN'S DISEASE
     Route: 042
  2. ALL OTHER THERAPEUTICS [Concomitant]
     Indication: CROHN'S DISEASE
     Route: 065

REACTIONS (1)
  - CANDIDIASIS [None]
